FAERS Safety Report 8784812 (Version 4)
Quarter: 2013Q3

REPORT INFORMATION
  Report Type: Spontaneous
  Country: US (occurrence: US)
  Receive Date: 20120914
  Receipt Date: 20130729
  Transmission Date: 20140515
  Serious: Yes (Death, Hospitalization)
  Sender: FDA-Public Use
  Company Number: US-UCBSA-065343

PATIENT
  Age: 74 Year
  Sex: Female

DRUGS (25)
  1. CIMZIA [Suspect]
     Indication: RHEUMATOID ARTHRITIS
     Dosage: STRENGTH: 400 MG STAT, THEN IN 2 WEEKS, THEN MONTHLY
     Dates: start: 201003, end: 2010
  2. FOLIC ACID [Concomitant]
  3. LORAZEPAM [Concomitant]
     Dosage: 1 MG
  4. RITUXAN [Concomitant]
     Dosage: FOR A TOTAL OF 2 DOSES
     Route: 030
     Dates: start: 20100929
  5. METHOTREXATE [Concomitant]
     Indication: RHEUMATOID ARTHRITIS
     Dosage: UNKNOWN DOSE
  6. METHOTREXATE [Concomitant]
     Indication: RHEUMATOID ARTHRITIS
     Route: 030
     Dates: start: 2010
  7. METHOTREXATE [Concomitant]
     Indication: RHEUMATOID ARTHRITIS
     Route: 030
     Dates: start: 2010
  8. METHOTREXATE [Concomitant]
     Indication: RHEUMATOID ARTHRITIS
     Dates: start: 2011
  9. SILVADENE [Concomitant]
  10. ULTRACET [Concomitant]
     Indication: PAIN
     Dosage: 325 MG-37.5 MG
  11. PREDNISONE [Concomitant]
     Dosage: 10 MG TID X 1 WEEK, FOLLOWED  BY BID X 1 WEEK
     Dates: start: 2010
  12. VOLTAREN [Concomitant]
  13. SPIRIVA [Concomitant]
     Dates: start: 2010, end: 2011
  14. SOLU MEDROL [Concomitant]
     Indication: HYPERSENSITIVITY
  15. CYTOXAN [Concomitant]
     Route: 042
     Dates: start: 201009
  16. KENALOG [Concomitant]
  17. NOVOCAIN [Concomitant]
  18. ACTONEL [Concomitant]
     Dates: start: 2010
  19. PROLIA [Concomitant]
  20. LANTUS SOLASTER [Concomitant]
     Dosage: PEN 100 UNITS/ML SOLUTION
  21. VITAMIN D2 [Concomitant]
     Dosage: 50,000 WEEKLY
     Dates: start: 2010
  22. LEVOLEUCOVORIN CALCIUM [Concomitant]
  23. QUINAPRIL [Concomitant]
     Dosage: 40 MG
  24. LIPITOR [Concomitant]
  25. BENADRYL [Concomitant]

REACTIONS (7)
  - Death [Fatal]
  - Herpes zoster [Unknown]
  - Retinopathy [Unknown]
  - Product quality issue [Unknown]
  - Injection site pain [Unknown]
  - Anorectal discomfort [Unknown]
  - Proctalgia [Unknown]
